FAERS Safety Report 5229735-8 (Version None)
Quarter: 2007Q1

REPORT INFORMATION
  Report Type: 
  Country: None (occurrence: None)
  Receive Date: 20070206
  Receipt Date: 20070129
  Transmission Date: 20070707
  Serious: Yes (Other)
  Sender: FDA-Public Use
  Company Number: IT-PFIZER INC-2006142062

PATIENT
  Sex: Female
  Weight: 51 kg

DRUGS (4)
  1. ATORVASTATIN CALCIUM [Suspect]
     Indication: TYPE IIA HYPERLIPIDAEMIA
     Dosage: DAILY DOSE:40MG
     Route: 048
     Dates: start: 20040709, end: 20040926
  2. ATORVASTATIN CALCIUM [Suspect]
     Dosage: DAILY DOSE:40MG
     Route: 048
     Dates: start: 20040927, end: 20060124
  3. LEVOTHYROXINE SODIUM [Concomitant]
     Route: 048
  4. BISOPROLOL FUMARATE [Concomitant]
     Route: 048

REACTIONS (1)
  - CUTANEOUS LUPUS ERYTHEMATOSUS [None]
